FAERS Safety Report 8968343 (Version 3)
Quarter: 2013Q1

REPORT INFORMATION
  Report Type: Report from Study
  Country: US (occurrence: US)
  Receive Date: 20121217
  Receipt Date: 20130212
  Transmission Date: 20140127
  Serious: No
  Sender: FDA-Public Use
  Company Number: US-VERTEX PHARMACEUTICALS INC.-2012-026073

PATIENT
  Sex: Male
  Weight: 106 kg

DRUGS (5)
  1. VX-950 (TELAPREVIR) [Suspect]
     Indication: HEPATITIS C
     Dosage: 750 MG, TID
     Route: 048
  2. PEGASYS [Suspect]
     Indication: HEPATITIS C
  3. RIBAVIRIN [Suspect]
     Indication: HEPATITIS C
     Dosage: 200 MG, UNK
  4. MULTI-VIT [Concomitant]
  5. BENADRYL                           /00000402/ [Concomitant]
     Dosage: 25 MG, UNK

REACTIONS (2)
  - Rash maculo-papular [Recovered/Resolved]
  - Pruritus [Unknown]
